FAERS Safety Report 17387254 (Version 1)
Quarter: 2020Q1

REPORT INFORMATION
  Report Type: Spontaneous
  Country: US (occurrence: US)
  Receive Date: 20200206
  Receipt Date: 20200206
  Transmission Date: 20200409
  Serious: No
  Sender: FDA-Public Use
  Company Number: US-RADIUS HEALTH INC.-2019US004218

PATIENT
  Age: 61 Year
  Sex: Female

DRUGS (1)
  1. TYMLOS [Suspect]
     Active Substance: ABALOPARATIDE
     Indication: OSTEOPOROSIS POSTMENOPAUSAL
     Dosage: 80 MCG, QD
     Route: 058
     Dates: start: 20191029, end: 20191108

REACTIONS (5)
  - Back pain [Unknown]
  - Heart rate increased [Recovered/Resolved]
  - Nausea [Unknown]
  - Erythema [Unknown]
  - Epistaxis [Unknown]

NARRATIVE: CASE EVENT DATE: 20191108
